FAERS Safety Report 19209907 (Version 1)
Quarter: 2021Q2

REPORT INFORMATION
  Report Type: Spontaneous
  Country: JP (occurrence: JP)
  Receive Date: 20210504
  Receipt Date: 20210504
  Transmission Date: 20210717
  Serious: Yes (Hospitalization)
  Sender: FDA-Public Use
  Company Number: JP-ORION CORPORATION ORION PHARMA-ENTC2021-0094

PATIENT
  Age: 78 Year
  Sex: Male

DRUGS (2)
  1. FERROMIA [Interacting]
     Active Substance: SODIUM FERROUS CITRATE
     Indication: PRODUCT USED FOR UNKNOWN INDICATION
     Dosage: MORNING AND EVENING
     Route: 065
  2. STALEVO [Suspect]
     Active Substance: CARBIDOPA\ENTACAPONE\LEVODOPA
     Indication: PARKINSON^S DISEASE
     Dosage: MORNING AND EVENING
     Route: 048

REACTIONS (3)
  - Drug interaction [Unknown]
  - Anaemia [Unknown]
  - Dysphagia [Unknown]

NARRATIVE: CASE EVENT DATE: 20210407
